FAERS Safety Report 20566772 (Version 1)
Quarter: 2022Q1

REPORT INFORMATION
  Report Type: Spontaneous
  Country: US (occurrence: None)
  Receive Date: 20220307
  Receipt Date: 20220307
  Transmission Date: 20220423
  Serious: Yes (Hospitalization)
  Sender: FDA-Public Use
  Company Number: None

PATIENT
  Age: 58 Year
  Sex: Female
  Weight: 130.5 kg

DRUGS (22)
  1. IBRANCE [Suspect]
     Active Substance: PALBOCICLIB
     Indication: Breast cancer female
     Dosage: OTHER FREQUENCY : QDX21 DAYS, 7 OFF;?
     Route: 048
     Dates: start: 20210414
  2. IBUPROFEN [Concomitant]
     Active Substance: IBUPROFEN
  3. DOXYCYCLINE [Concomitant]
     Active Substance: DOXYCYCLINE
  4. NORCO [Concomitant]
     Active Substance: ACETAMINOPHEN\HYDROCODONE BITARTRATE
  5. METHOCARBAMOL 500MG [Concomitant]
  6. CHOLESTYRAMINE LIGHT 4GM [Concomitant]
  7. FLORASTOR 250MG [Concomitant]
  8. VALSARTAN [Concomitant]
     Active Substance: VALSARTAN
  9. CLOTRIMAZOLE 1% [Concomitant]
  10. AMITRIPTYLINE [Concomitant]
     Active Substance: AMITRIPTYLINE
  11. DICYCLOMINE [Concomitant]
     Active Substance: DICYCLOMINE HYDROCHLORIDE
  12. MECLIZINE 25MG, ASPIRIN 81MG [Concomitant]
  13. ESCITALOPRAM 10MG, ROSUVASTATIN 20MG [Concomitant]
  14. MOMETASONE FUROATE 0.1%, CLOPIDOGREL 75MG [Concomitant]
  15. NYSTATIN, METOPROLOL SUCCINATE 25MG [Concomitant]
  16. LOPERAMIDE 2MG, GAVISCON [Concomitant]
  17. XANAX 0.5MG, FASLODEX 250MG/5ML [Concomitant]
  18. KETOCONAZOLE 2%, XGEVA 120MG/1.7ML [Concomitant]
  19. TACROLIMUS 0.1%, HYDROCHLOROTHIAZIDE 25MG [Concomitant]
  20. NASACORT ALLERGY 55MCG [Concomitant]
  21. VITAMIN D 25MCG, VITAMIN C 500MG [Concomitant]
  22. MULTIVITAMIN, FAMOTIDINE 10MG [Concomitant]

REACTIONS (3)
  - Gastric neoplasm [None]
  - Coronary arterial stent insertion [None]
  - Therapy interrupted [None]

NARRATIVE: CASE EVENT DATE: 20220302
